FAERS Safety Report 7247225-8 (Version None)
Quarter: 2011Q1

REPORT INFORMATION
  Report Type: 
  Country: None (occurrence: None)
  Receive Date: 20110127
  Receipt Date: 20110119
  Transmission Date: 20110831
  Serious: Yes (Other)
  Sender: FDA-Public Use
  Company Number: DE-GENZYME-CAMP-1001307

PATIENT
  Age: 39 Year
  Sex: Male

DRUGS (10)
  1. CAMPATH [Suspect]
     Dosage: 20 MG, Q2W (Q 2-3 WEEKS)
     Route: 042
  2. CORTICOSTEROIDS [Concomitant]
     Indication: ACUTE GRAFT VERSUS HOST DISEASE
  3. CYCLOPHOSPHAMIDE [Suspect]
     Indication: STEM CELL TRANSPLANT
     Dosage: UNK
     Route: 065
  4. TRIMETHOPRIM + SULFAMETHOXAZOLE [Concomitant]
     Indication: INFECTION PROPHYLAXIS
  5. CYCLOSPORINE [Concomitant]
     Indication: PROPHYLAXIS AGAINST GRAFT VERSUS HOST DISEASE
  6. FLUCONAZOLE [Concomitant]
     Indication: INFECTION PROPHYLAXIS
  7. ACYCLOVIR [Concomitant]
     Indication: INFECTION PROPHYLAXIS
  8. MYCOPHENOLATE MOFETIL [Concomitant]
     Indication: PROPHYLAXIS AGAINST GRAFT VERSUS HOST DISEASE
  9. CAMPATH [Suspect]
     Indication: ACUTE GRAFT VERSUS HOST DISEASE
     Dosage: 20-33 MG OVER 2-3 DAYS
     Route: 042
  10. BUSULFAN [Suspect]
     Indication: STEM CELL TRANSPLANT
     Dosage: UNK
     Route: 065

REACTIONS (5)
  - GASTROENTERITIS NOROVIRUS [None]
  - CHRONIC GRAFT VERSUS HOST DISEASE [None]
  - CYSTITIS VIRAL [None]
  - PAROTITIS [None]
  - SOFT TISSUE INFECTION [None]
